FAERS Safety Report 10039738 (Version 2)
Quarter: 2014Q1

REPORT INFORMATION
  Report Type: Report from Study
  Country: CA (occurrence: CA)
  Receive Date: 20140326
  Receipt Date: 20140327
  Transmission Date: 20141002
  Serious: Yes (Other)
  Sender: FDA-Public Use
  Company Number: CA-JNJFOC-20140312813

PATIENT
  Age: 59 Year
  Sex: Female

DRUGS (1)
  1. SIMPONI [Suspect]
     Indication: RHEUMATOID ARTHRITIS
     Dosage: THIRD DOSE
     Route: 058
     Dates: start: 20140114

REACTIONS (2)
  - Vestibular neuronitis [Recovering/Resolving]
  - Ear infection [Unknown]
